FAERS Safety Report 8885793 (Version 1)
Quarter: 2012Q4

REPORT INFORMATION
  Report Type: 
  Country: AR (occurrence: AR)
  Receive Date: 20121105
  Receipt Date: 20121105
  Transmission Date: 20130627
  Serious: Yes (Death)
  Sender: FDA-Public Use
  Company Number: PHHY2012AR100747

PATIENT
  Sex: Female

DRUGS (2)
  1. EXELON [Suspect]
  2. DIOVAN [Suspect]

REACTIONS (1)
  - Mental disorder [Fatal]
